FAERS Safety Report 14700068 (Version 2)
Quarter: 2018Q2

REPORT INFORMATION
  Report Type: Spontaneous
  Country: FR (occurrence: FR)
  Receive Date: 20180330
  Receipt Date: 20180416
  Transmission Date: 20180711
  Serious: Yes (Other)
  Sender: FDA-Public Use
  Company Number: FR-GILEAD-2018-0329124

PATIENT
  Age: 41 Year
  Sex: Male
  Weight: 63 kg

DRUGS (1)
  1. GENVOYA [Suspect]
     Active Substance: COBICISTAT\ELVITEGRAVIR\EMTRICITABINE\TENOFOVIR ALAFENAMIDE FUMARATE
     Indication: HIV INFECTION
     Dosage: UNK
     Route: 065
     Dates: start: 20170711, end: 20180227

REACTIONS (4)
  - Lipohypertrophy [Unknown]
  - Hepatocellular injury [Unknown]
  - Weight increased [Unknown]
  - Lipoma [Unknown]
